FAERS Safety Report 5530688-3 (Version None)
Quarter: 2007Q4

REPORT INFORMATION
  Report Type: 
  Country: None (occurrence: None)
  Receive Date: 20071130
  Receipt Date: 20071116
  Transmission Date: 20080405
  Serious: Yes (Life-Threatening, Hospitalization, Disabling, Other)
  Sender: FDA-Public Use
  Company Number: GB-RANBAXY-2006RR-04362

PATIENT

DRUGS (8)
  1. ERYTHROMYCIN TABLETS BP 250MG [Suspect]
     Dosage: UNK
     Route: 065
  2. SIMVASTATIN 20MG TABLETS [Suspect]
     Dosage: 20 MG, QD
     Route: 048
     Dates: start: 20050401, end: 20051121
  3. BUMETANIDE [Concomitant]
     Dosage: 2 MG, QD
     Route: 048
  4. BISOPROLOL 5MG TABLETS [Concomitant]
     Dosage: 1.25 MG, QD
     Route: 048
  5. DIGOXIN [Concomitant]
     Dosage: 62.5 UG, QD
  6. LANSOPRAZOLE 30 MG GASTRO-RESISTANT CAPSULES [Concomitant]
     Dosage: 30 MG, QD
  7. TRAMADOL HCL [Concomitant]
     Route: 048
  8. WARFARIN SODIUM [Concomitant]
     Dosage: 2 MG, QD

REACTIONS (8)
  - ABASIA [None]
  - ASPARTATE AMINOTRANSFERASE INCREASED [None]
  - DRUG INTERACTION [None]
  - HAEMODIALYSIS [None]
  - MYALGIA [None]
  - MYOGLOBINURIA [None]
  - RENAL FAILURE [None]
  - RHABDOMYOLYSIS [None]
